FAERS Safety Report 10088094 (Version 1)
Quarter: 2014Q2

REPORT INFORMATION
  Report Type: Spontaneous
  Country: FR (occurrence: FR)
  Receive Date: 20140421
  Receipt Date: 20140421
  Transmission Date: 20141212
  Serious: Yes (Hospitalization)
  Sender: FDA-Public Use
  Company Number: FR-AMGEN INC.-FRASP2014027567

PATIENT
  Sex: Female

DRUGS (3)
  1. PROLIA [Suspect]
     Indication: OSTEOPOROSIS POSTMENOPAUSAL
     Dosage: UNK
     Route: 065
     Dates: start: 201312
  2. CELESTA [Concomitant]
  3. LYSANXIA [Concomitant]

REACTIONS (3)
  - Influenza [Recovering/Resolving]
  - Weight decreased [Unknown]
  - Decreased appetite [Unknown]
